FAERS Safety Report 4465741-9 (Version None)
Quarter: 2004Q3

REPORT INFORMATION
  Report Type: 
  Country: None (occurrence: None)
  Receive Date: 20040929
  Receipt Date: 20040929
  Transmission Date: 20050211
  Serious: Yes (Hospitalization)
  Sender: FDA-Public Use
  Company Number: None

PATIENT
  Age: 55 Year
  Sex: Male
  Weight: 59 kg

DRUGS (9)
  1. WARFARIN SODIUM [Suspect]
     Indication: PULMONARY EMBOLISM
     Dosage: 5 MG   DAILY   ORAL
     Route: 048
     Dates: start: 20030910, end: 20040218
  2. GEFITINIB [Suspect]
     Indication: NON-SMALL CELL LUNG CANCER STAGE IV
     Dosage: 250 MG  DAILY  ORAL
     Route: 048
     Dates: start: 20040204, end: 20040218
  3. ROBITUSSIN AC [Concomitant]
  4. OMEPRAZOLE [Concomitant]
  5. SERTRALINE HCL [Concomitant]
  6. PHENERGAN [Concomitant]
  7. MEGACE [Concomitant]
  8. PERCOCET [Concomitant]
  9. PREDNISONE [Concomitant]

REACTIONS (3)
  - FATIGUE [None]
  - INTERNATIONAL NORMALISED RATIO INCREASED [None]
  - PULMONARY HAEMORRHAGE [None]
